FAERS Safety Report 10766601 (Version 1)
Quarter: 2015Q1

REPORT INFORMATION
  Report Type: Report from Study
  Country: ZA (occurrence: ZA)
  Receive Date: 20150205
  Receipt Date: 20150205
  Transmission Date: 20150721
  Serious: Yes (Other)
  Sender: FDA-Public Use
  Company Number: ZA-BAYER-2015-012981

PATIENT
  Age: 61 Year
  Sex: Male

DRUGS (2)
  1. SOLU-MEDROL [Concomitant]
     Active Substance: METHYLPREDNISOLONE SODIUM SUCCINATE
  2. BETAFERON [Suspect]
     Active Substance: INTERFERON BETA-1B
     Indication: RELAPSING-REMITTING MULTIPLE SCLEROSIS
     Dosage: 8 MIU, QOD
     Route: 058
     Dates: start: 20140721

REACTIONS (11)
  - Hyperreflexia [None]
  - Hyperaesthesia [None]
  - Eyelid ptosis [None]
  - Romberg test positive [None]
  - Optic atrophy [None]
  - Saccadic eye movement [None]
  - Feeling abnormal [None]
  - Anxiety [None]
  - Cardiac fibrillation [None]
  - Cardiac disorder [None]
  - Muscular weakness [None]
